FAERS Safety Report 4271979-6 (Version None)
Quarter: 2004Q1

REPORT INFORMATION
  Report Type: 
  Country: None (occurrence: None)
  Receive Date: 20040115
  Receipt Date: 20020912
  Transmission Date: 20041129
  Serious: Yes (Other)
  Sender: FDA-Public Use
  Company Number: US-BRISTOL-MYERS SQUIBB COMPANY-12035333

PATIENT
  Age: 57 Year
  Sex: Male

DRUGS (15)
  1. PRAVASTATIN SODIUM [Suspect]
     Dosage: LAST DOSE PRIOR TO EVENT = 14-JAN-2002
     Route: 048
     Dates: start: 20010518
  2. GATIFLOXACIN [Suspect]
     Route: 048
     Dates: start: 20010601, end: 20020114
  3. METFORMIN HCL [Concomitant]
     Route: 048
     Dates: start: 19970519
  4. GLYBURIDE [Concomitant]
     Route: 048
     Dates: start: 20000502
  5. REGULAR INSULIN [Concomitant]
     Dosage: DOSAGE FORM = UNITS
     Route: 058
     Dates: start: 19970123
  6. NPH ILETIN II [Concomitant]
     Dosage: DOSAGE FORM = UNITS
     Route: 058
     Dates: start: 19970123
  7. CARVEDILOL [Concomitant]
     Route: 048
     Dates: start: 20000502
  8. ASPIRIN [Concomitant]
     Route: 048
     Dates: start: 19960419
  9. LASIX [Concomitant]
     Route: 048
     Dates: start: 19960709
  10. CELECOXIB [Concomitant]
     Route: 048
     Dates: start: 20010924
  11. PLAVIX [Concomitant]
     Route: 048
     Dates: start: 20010521
  12. DIGOXIN [Concomitant]
     Route: 048
     Dates: start: 20010101
  13. ACIPHEX [Concomitant]
     Route: 048
     Dates: start: 20011201
  14. SPIRONOLACTONE [Concomitant]
     Route: 048
     Dates: start: 20000502
  15. CANDESARTAN CILEXETIL [Concomitant]
     Route: 048
     Dates: start: 20010101

REACTIONS (1)
  - BLOOD GLUCOSE INCREASED [None]
